FAERS Safety Report 5166057-8 (Version None)
Quarter: 2006Q4

REPORT INFORMATION
  Report Type: 
  Country: None (occurrence: None)
  Receive Date: 20061129
  Receipt Date: 20061108
  Transmission Date: 20070319
  Serious: Yes (Hospitalization)
  Sender: FDA-Public Use
  Company Number: 230740

PATIENT
  Age: 59 Year
  Sex: Female
  Weight: 60.3 kg

DRUGS (10)
  1. AVASTIN [Suspect]
     Indication: PANCREATIC CARCINOMA
     Dosage: 900 MG, Q3W; INTRAVENOUS
     Route: 042
     Dates: start: 20060919
  2. GEMCITABINE [Suspect]
     Indication: PANCREATIC CARCINOMA
     Dosage: 750 MG/M2, 2/WEEK; INTRAVENOUS
     Route: 042
     Dates: start: 20060929
  3. XELODA [Suspect]
     Indication: PANCREATIC CARCINOMA
     Dosage: 500 MG, BID; ORAL
     Route: 048
     Dates: start: 20060919
  4. ATENOLOL [Concomitant]
  5. GLYBURIDE [Concomitant]
  6. PANGESTYME UL 19 (DIGESTIVE ENZYMES) [Concomitant]
  7. LISINOPRIL [Concomitant]
  8. PRILOSEC [Concomitant]
  9. PREMARIN [Concomitant]
  10. POTASSIUM (POTASSIUM NOS) [Concomitant]

REACTIONS (9)
  - ABSCESS NECK [None]
  - CULTURE WOUND POSITIVE [None]
  - DYSPHAGIA [None]
  - IMPAIRED HEALING [None]
  - INFECTION [None]
  - ORAL PAIN [None]
  - PAIN IN JAW [None]
  - STREPTOCOCCAL INFECTION [None]
  - SWOLLEN TONGUE [None]
